FAERS Safety Report 7753499-7 (Version None)
Quarter: 2011Q3

REPORT INFORMATION
  Report Type: 
  Country: None (occurrence: None)
  Receive Date: 20110913
  Receipt Date: 20110830
  Transmission Date: 20111222
  Serious: Yes (Life-Threatening, Hospitalization)
  Sender: FDA-Public Use
  Company Number: 1000021444

PATIENT
  Age: 73 Year
  Sex: Female

DRUGS (8)
  1. LISINOPRIL [Concomitant]
  2. NUX VOMICA (NUX VOMICA HOMACORD) [Suspect]
  3. HYDROCHLOROTHIAZIDE [Concomitant]
  4. SPIRIVA [Concomitant]
  5. ESOMEPRAZOLE SODIUM [Concomitant]
  6. ATAMADISC MITE (FLUTICASONE, SALMETEROL) [Concomitant]
  7. HOMEOPATHIC MEDICATION [Concomitant]
  8. ROFLUMILAST [Suspect]
     Indication: CHRONIC OBSTRUCTIVE PULMONARY DISEASE
     Dosage: 1 DF (1 DOSAGE FORMS, 1 IN 1 D), ORAL
     Route: 048
     Dates: start: 20110225, end: 20110517

REACTIONS (1)
  - ANGIOEDEMA [None]
